FAERS Safety Report 4536673-2 (Version None)
Quarter: 2004Q4

REPORT INFORMATION
  Report Type: 
  Country: None (occurrence: None)
  Receive Date: 20041220
  Receipt Date: 20041203
  Transmission Date: 20050328
  Serious: Yes (Hospitalization)
  Sender: FDA-Public Use
  Company Number: 203611

PATIENT
  Age: 64 Year
  Sex: Female
  Weight: 82.1011 kg

DRUGS (4)
  1. AVONEX [Suspect]
     Indication: MULTIPLE SCLEROSIS
     Dosage: 30 UG; QW; IM
     Route: 030
     Dates: start: 20020101, end: 20040301
  2. AVONEX [Suspect]
     Indication: MULTIPLE SCLEROSIS
     Dosage: 30 UG; QW; IM
     Route: 030
     Dates: start: 20040301, end: 20040714
  3. SYNTHROID [Concomitant]
  4. ELAVIL [Concomitant]

REACTIONS (14)
  - ABASIA [None]
  - BONE PAIN [None]
  - CONDITION AGGRAVATED [None]
  - CONVULSION [None]
  - DIABETES MELLITUS [None]
  - DYSSTASIA [None]
  - ENCEPHALOPATHY [None]
  - FALL [None]
  - HYPERGLYCAEMIA [None]
  - JOINT SWELLING [None]
  - MUSCULAR WEAKNESS [None]
  - PYREXIA [None]
  - SEPSIS [None]
  - ULCER [None]
